FAERS Safety Report 15008994 (Version 2)
Quarter: 2018Q2

REPORT INFORMATION
  Report Type: Report from Study
  Country: JP (occurrence: JP)
  Receive Date: 20180614
  Receipt Date: 20180621
  Transmission Date: 20180711
  Serious: Yes (Hospitalization, Other)
  Sender: FDA-Public Use
  Company Number: JP-AMGEN-JPNCT2017027720

PATIENT
  Age: 72 Year
  Sex: Male
  Weight: 70.2 kg

DRUGS (21)
  1. PANITUMUMAB [Suspect]
     Active Substance: PANITUMUMAB
     Dosage: 4.8 MG/KG, Q2WK
     Route: 041
     Dates: start: 20170315, end: 20170607
  2. CALCIUM LEVOFOLINATE [Concomitant]
     Active Substance: LEVOLEUCOVORIN CALCIUM
     Indication: COLON CANCER
     Dosage: 200 MG/M2, Q2WEEKS
     Route: 041
     Dates: start: 20161221, end: 20170215
  3. CALCIUM LEVOFOLINATE [Concomitant]
     Active Substance: LEVOLEUCOVORIN CALCIUM
     Dosage: UNK UNK, Q2WEEKS
     Route: 041
     Dates: start: 20171206, end: 20180509
  4. FLUOROURACIL. [Concomitant]
     Active Substance: FLUOROURACIL
     Dosage: 200 MG/M2, Q2WK
     Route: 040
     Dates: start: 20170315, end: 20171025
  5. FLUOROURACIL. [Concomitant]
     Active Substance: FLUOROURACIL
     Dosage: 200 MG/M2, Q2WK
     Route: 040
     Dates: start: 20171206
  6. PANITUMUMAB [Suspect]
     Active Substance: PANITUMUMAB
     Indication: COLON CANCER
     Dosage: 6 MG/KG, Q2WK
     Route: 041
     Dates: start: 20161221, end: 20170215
  7. AMLODIPINE BESILATE [Concomitant]
     Active Substance: AMLODIPINE BESYLATE
     Indication: HYPERTENSION
     Dosage: 5 MG, QD
     Route: 048
     Dates: start: 20160524
  8. LINAGLIPTIN [Concomitant]
     Active Substance: LINAGLIPTIN
     Indication: TYPE 2 DIABETES MELLITUS
     Dosage: 5 MG, QD
     Route: 048
     Dates: start: 20160524
  9. CALCIUM LEVOFOLINATE [Concomitant]
     Active Substance: LEVOLEUCOVORIN CALCIUM
     Dosage: UNK UNK, Q2WEEKS
     Route: 041
     Dates: start: 20170315, end: 20171025
  10. FLUOROURACIL. [Concomitant]
     Active Substance: FLUOROURACIL
     Dosage: 2000 MG/M2, Q2WEEKS
     Route: 041
     Dates: start: 20170315, end: 20171025
  11. NICORANDIL [Concomitant]
     Active Substance: NICORANDIL
     Indication: CORONARY ARTERY STENOSIS
     Dosage: 5 MG, TID
     Route: 048
     Dates: start: 20151008
  12. PANITUMUMAB [Suspect]
     Active Substance: PANITUMUMAB
     Dosage: 3.6 MG/KG, Q2WK
     Route: 041
     Dates: start: 20171206, end: 20180509
  13. ACETYLSALICYLIC ACID [Concomitant]
     Active Substance: ASPIRIN
     Indication: CORONARY ARTERY STENOSIS
     Dosage: 1 DF, QD
     Route: 048
     Dates: start: 20160201
  14. OXALIPLATIN. [Concomitant]
     Active Substance: OXALIPLATIN
     Indication: COLON CANCER
     Dosage: 85 MG/M2, Q2WEEKS
     Route: 041
     Dates: start: 20161221, end: 20170215
  15. FLUOROURACIL. [Concomitant]
     Active Substance: FLUOROURACIL
     Indication: COLON CANCER
     Dosage: 400 MG/M2, Q2WK
     Route: 040
     Dates: start: 20161221, end: 20170215
  16. FLUOROURACIL. [Concomitant]
     Active Substance: FLUOROURACIL
     Dosage: 2400 MG, Q2WK
     Route: 040
     Dates: start: 20161221, end: 20170215
  17. PANITUMUMAB [Suspect]
     Active Substance: PANITUMUMAB
     Dosage: 3.6 MG/KG, Q2WK
     Route: 041
     Dates: start: 20170705, end: 20171025
  18. OXALIPLATIN. [Concomitant]
     Active Substance: OXALIPLATIN
     Dosage: 65 MG/M2, Q2WEEKS
     Route: 041
     Dates: start: 20170315, end: 20170510
  19. TRANEXAMIC ACID. [Concomitant]
     Active Substance: TRANEXAMIC ACID
     Indication: PROPHYLAXIS
     Dosage: 250 MG, TID
     Route: 048
     Dates: start: 20170215
  20. FLUOROURACIL. [Concomitant]
     Active Substance: FLUOROURACIL
     Dosage: 2000 MG/M2, Q2WEEKS
     Route: 041
     Dates: start: 20171206, end: 20180509
  21. MINOCYCLINE HYDROCHLORIDE. [Concomitant]
     Active Substance: MINOCYCLINE HYDROCHLORIDE
     Indication: PROPHYLAXIS
     Dosage: 100 MG, BID
     Route: 048
     Dates: start: 20161221

REACTIONS (15)
  - Dry skin [Unknown]
  - Decreased appetite [Unknown]
  - Fatigue [Recovered/Resolved]
  - Hypothyroidism [Not Recovered/Not Resolved]
  - Hypomagnesaemia [Unknown]
  - Dermatitis acneiform [Unknown]
  - Peripheral sensory neuropathy [Unknown]
  - Nausea [Recovered/Resolved]
  - Paronychia [Recovered/Resolved]
  - Diarrhoea [Recovered/Resolved]
  - Liver abscess [Recovering/Resolving]
  - Blood creatine phosphokinase increased [Unknown]
  - Diarrhoea [Unknown]
  - Muscular weakness [Not Recovered/Not Resolved]
  - Decreased appetite [Recovered/Resolved]

NARRATIVE: CASE EVENT DATE: 20171108
